FAERS Safety Report 8607226 (Version 2)
Quarter: 2013Q3

REPORT INFORMATION
  Report Type: Spontaneous
  Country: US (occurrence: US)
  Receive Date: 20120611
  Receipt Date: 20130723
  Transmission Date: 20140515
  Serious: Yes (Hospitalization, Other)
  Sender: FDA-Public Use
  Company Number: US-ASTRAZENECA-2012SE34621

PATIENT
  Age: 813 Month
  Sex: Female
  Weight: 94.3 kg

DRUGS (36)
  1. NEXIUM [Suspect]
     Indication: HIATUS HERNIA
     Dosage: TWO TIMES A DAY
     Route: 048
  2. NEXIUM [Suspect]
     Indication: GASTROOESOPHAGEAL REFLUX DISEASE
     Dosage: TWO TIMES A DAY
     Route: 048
  3. NEXIUM [Suspect]
     Indication: GASTRIC ULCER
     Dosage: TWO TIMES A DAY
     Route: 048
  4. PRILOSEC [Suspect]
     Indication: ULCER
     Route: 048
     Dates: start: 19990414
  5. TUMS [Concomitant]
     Indication: ULCER
  6. PEPTO BISMOL [Concomitant]
     Dosage: AS NEEDED
  7. ALKA SELTZER [Concomitant]
  8. GAVISCON [Concomitant]
  9. ZETIA [Concomitant]
     Dates: start: 20030323
  10. SINGULAIR [Concomitant]
     Indication: HYPERSENSITIVITY
     Dates: start: 20060926
  11. NOVOLOG [Concomitant]
     Dosage: 70/30
     Dates: start: 20040226
  12. LANTUS [Concomitant]
  13. LORATADINE [Concomitant]
     Indication: HYPERSENSITIVITY
     Dates: start: 20081002
  14. ACCUPRIL [Concomitant]
     Dates: start: 19970818
  15. ISOPTIN SR [Concomitant]
     Dates: start: 19970818
  16. SYNTHROID [Concomitant]
     Dates: start: 19971027
  17. SYNTHROID [Concomitant]
     Dates: start: 19990414
  18. FLOXIN [Concomitant]
     Dates: start: 19971114
  19. ALLEGRA [Concomitant]
     Dates: start: 19980518
  20. ZITHROMAX [Concomitant]
     Dates: start: 19980518
  21. METRONIDAZOL [Concomitant]
     Dates: start: 19990414
  22. LOPID [Concomitant]
     Dates: start: 19990430
  23. RANITIDINE [Concomitant]
     Dates: start: 19991021
  24. TRICOR [Concomitant]
     Dates: start: 19991021
  25. XENICAL [Concomitant]
     Dates: start: 20000131
  26. GLUCOVANCE [Concomitant]
     Dosage: 5/500 MG
     Dates: start: 20010228
  27. ZYRTEC [Concomitant]
     Dates: start: 20010228
  28. ACETAMINO/CODEINE [Concomitant]
     Dosage: 300-30 MG.
     Dates: start: 20010628
  29. NORVASC [Concomitant]
     Dates: start: 20110814
  30. STARLIX [Concomitant]
     Dates: start: 20020607
  31. LOTREL [Concomitant]
     Dosage: 5-10 MG
     Dates: start: 20020819
  32. PRANDIN [Concomitant]
     Dates: start: 20030523
  33. AVANDIA [Concomitant]
     Dates: start: 20030604
  34. LAMISIL [Concomitant]
     Dates: start: 20030811
  35. AMARYL [Concomitant]
     Dates: start: 20060913
  36. LISINO-HCTZ [Concomitant]
     Dosage: 20-25 MG
     Dates: start: 20070913

REACTIONS (15)
  - Bladder cancer [Unknown]
  - Femur fracture [Unknown]
  - Transient ischaemic attack [Unknown]
  - Uterine cancer [Unknown]
  - Osteoporosis [Unknown]
  - Multiple fractures [Unknown]
  - Arthritis [Unknown]
  - Bone disorder [Unknown]
  - Diabetes mellitus [Unknown]
  - Cataract [Unknown]
  - Cardiovascular disorder [Unknown]
  - Hypertension [Unknown]
  - Blood cholesterol increased [Unknown]
  - Hypothyroidism [Unknown]
  - Goitre [Unknown]
